FAERS Safety Report 9871046 (Version 1)
Quarter: 2014Q1

REPORT INFORMATION
  Report Type: Report from Study
  Country: CA (occurrence: CA)
  Receive Date: 20140205
  Receipt Date: 20140205
  Transmission Date: 20141002
  Serious: Yes (Other)
  Sender: FDA-Public Use
  Company Number: CA-JNJFOC-20140118784

PATIENT
  Age: 59 Year
  Sex: Female
  Weight: 56 kg

DRUGS (5)
  1. REMICADE [Suspect]
     Indication: CROHN^S DISEASE
     Route: 042
     Dates: start: 20140129
  2. REMICADE [Suspect]
     Indication: CROHN^S DISEASE
     Dosage: 44 TH INFUSION.
     Route: 042
     Dates: start: 20080512
  3. VENTOLIN [Concomitant]
     Route: 065
  4. FLOVENT [Concomitant]
     Route: 065
  5. ADVAIR [Concomitant]
     Route: 065

REACTIONS (2)
  - Tachycardia [Recovered/Resolved]
  - Infusion related reaction [Recovered/Resolved]
